FAERS Safety Report 8960681 (Version 1)
Quarter: 2012Q4

REPORT INFORMATION
  Report Type: 
  Country: GB (occurrence: GB)
  Receive Date: 20121212
  Receipt Date: 20121212
  Transmission Date: 20130627
  Serious: Yes (Other)
  Sender: FDA-Public Use
  Company Number: GB-WATSON-2012-21957

PATIENT
  Age: 35 Year
  Sex: Female
  Weight: 78 kg

DRUGS (5)
  1. MIRTAZAPINE (UNKNOWN) [Suspect]
     Indication: DEPRESSION
     Dosage: 15 mg, unknown
     Route: 048
     Dates: start: 20120921, end: 20121021
  2. SERTRALINE HYDROCHLORIDE (UNKNOWN) [Suspect]
     Indication: DEPRESSION
     Dosage: 50-150mg
     Route: 048
     Dates: start: 20120828, end: 20121014
  3. ECHINACEA                          /01323501/ [Concomitant]
     Indication: IMMUNISATION
     Dosage: UNK
     Route: 048
  4. SPIRULINA                          /01514001/ [Concomitant]
     Indication: PRODUCT USED FOR UNKNOWN INDICATION
     Dosage: UNK
     Route: 048
  5. ANTIOXIDANT                        /02147801/ [Concomitant]
     Indication: ROUTINE HEALTH MAINTENANCE
     Dosage: UNK
     Route: 048

REACTIONS (7)
  - Liver function test abnormal [Recovering/Resolving]
  - Drug-induced liver injury [Recovering/Resolving]
  - Liver disorder [Recovering/Resolving]
  - Inflammation [Recovering/Resolving]
  - Gamma-glutamyltransferase abnormal [Recovering/Resolving]
  - Blood alkaline phosphatase increased [Recovering/Resolving]
  - Alanine aminotransferase increased [Recovering/Resolving]
